FAERS Safety Report 20180096 (Version 1)
Quarter: 2021Q4

REPORT INFORMATION
  Report Type: Spontaneous
  Country: US (occurrence: US)
  Receive Date: 20211214
  Receipt Date: 20211214
  Transmission Date: 20220304
  Serious: Yes (Hospitalization)
  Sender: FDA-Public Use
  Company Number: US-STRIDES ARCOLAB LIMITED-2021SP029183

PATIENT
  Age: 54 Year
  Sex: Male

DRUGS (4)
  1. PREDNISOLONE [Suspect]
     Active Substance: PREDNISOLONE
     Indication: Glomerulonephritis minimal lesion
     Dosage: 80 MILLIGRAM PER DAY FOR 8 WEEKS
     Route: 048
     Dates: start: 2014
  2. PREDNISOLONE [Suspect]
     Active Substance: PREDNISOLONE
     Dosage: UNK, TAPERED OFF
     Route: 048
  3. MYCOPHENOLATE MOFETIL [Suspect]
     Active Substance: MYCOPHENOLATE MOFETIL
     Indication: Glomerulonephritis minimal lesion
     Dosage: UNK
     Route: 065
     Dates: start: 2014
  4. FUROSEMIDE [Suspect]
     Active Substance: FUROSEMIDE
     Indication: Glomerulonephritis minimal lesion
     Dosage: 20 MILLIGRAM PER DAY
     Route: 048
     Dates: start: 2014

REACTIONS (2)
  - Drug ineffective [Unknown]
  - Off label use [Unknown]

NARRATIVE: CASE EVENT DATE: 20140101
